FAERS Safety Report 8988370 (Version 1)
Quarter: 2012Q4

REPORT INFORMATION
  Report Type: Spontaneous
  Country: US (occurrence: None)
  Receive Date: 20121220
  Receipt Date: 20121220
  Transmission Date: 20130627
  Serious: Yes (Other)
  Sender: FDA-Public Use
  Company Number: None

PATIENT
  Age: 31 Year
  Sex: Female
  Weight: 68.04 kg

DRUGS (1)
  1. SUMATRIPTAN 25MG MYLAN [Suspect]
     Indication: MIGRAINE
     Dates: start: 20121210, end: 20121211

REACTIONS (5)
  - Chest pain [None]
  - Vasospasm [None]
  - Joint stiffness [None]
  - Asthenia [None]
  - Paraesthesia [None]
